FAERS Safety Report 6936084-6 (Version None)
Quarter: 2010Q3

REPORT INFORMATION
  Report Type: 
  Country: None (occurrence: None)
  Receive Date: 20100823
  Receipt Date: 20100812
  Transmission Date: 20110219
  Serious: Yes (Hospitalization)
  Sender: FDA-Public Use
  Company Number: IN-B.I. PHARMACEUTICALS,INC./RIDGEFIELD-2010-DE-04416GD

PATIENT

DRUGS (1)
  1. TELMISARTAN [Suspect]
     Indication: DIABETIC NEPHROPATHY
     Dosage: STARTED AT A DOSE OF 40 MG, UPTITRATION TO 80 MG AFTER 2 WEEKS

REACTIONS (1)
  - DIABETIC KETOACIDOSIS [None]
